FAERS Safety Report 17007169 (Version 2)
Quarter: 2019Q4

REPORT INFORMATION
  Report Type: Spontaneous
  Country: US (occurrence: US)
  Receive Date: 20191107
  Receipt Date: 20191205
  Transmission Date: 20200122
  Serious: No
  Sender: FDA-Public Use
  Company Number: US-SHIRE-US201937526

PATIENT
  Sex: Female
  Weight: 65.31 kg

DRUGS (2)
  1. XIIDRA [Suspect]
     Active Substance: LIFITEGRAST
     Indication: DRY EYE
     Dosage: 1 GTT DROPS, 2X/DAY:BID
     Route: 047
     Dates: start: 20191024, end: 201911
  2. XIIDRA [Suspect]
     Active Substance: LIFITEGRAST
     Dosage: 1 GTT DROPS, 2X/DAY:BID
     Route: 047
     Dates: start: 20191024, end: 201911

REACTIONS (6)
  - Drug ineffective [Recovered/Resolved]
  - Sinusitis [Recovered/Resolved]
  - Dysgeusia [Recovered/Resolved]
  - Decreased appetite [Recovered/Resolved]
  - Taste disorder [Not Recovered/Not Resolved]
  - Toothache [Recovered/Resolved]

NARRATIVE: CASE EVENT DATE: 2019
